FAERS Safety Report 24647096 (Version 1)
Quarter: 2024Q4

REPORT INFORMATION
  Report Type: Spontaneous
  Country: IT (occurrence: IT)
  Receive Date: 20241121
  Receipt Date: 20241121
  Transmission Date: 20250115
  Serious: Yes (Hospitalization)
  Sender: ACCORD
  Company Number: None

PATIENT
  Age: 47 Year
  Sex: Male
  Weight: 110 kg

DRUGS (3)
  1. CISPLATIN [Suspect]
     Active Substance: CISPLATIN
     Indication: Seminoma
     Dosage: 40 MG TOTAL / DAY FOR 5 DAYS EVERY 3 WEEKS
     Dates: start: 20240325, end: 20240522
  2. ETOPOSIDE [Suspect]
     Active Substance: ETOPOSIDE
     Indication: Seminoma
     Dosage: 200 MG TOTAL/DAY FOR 5 DAYS EVERY 21 DAYS
     Dates: start: 20240325, end: 20240522
  3. BLEOMYCIN [Suspect]
     Active Substance: BLEOMYCIN SULFATE
     Indication: Seminoma
     Dosage: 30 MG TOTAL WEEKLY FOR 3 CYCLES (9 DOSES TOTAL)
     Dates: start: 20240325, end: 20240522

REACTIONS (1)
  - Pulmonary fibrosis [Recovered/Resolved with Sequelae]

NARRATIVE: CASE EVENT DATE: 20240603
